FAERS Safety Report 4300091-2 (Version None)
Quarter: 2004Q1

REPORT INFORMATION
  Report Type: 
  Country: None (occurrence: None)
  Receive Date: 20040219
  Receipt Date: 20040219
  Transmission Date: 20041129
  Serious: Yes (Hospitalization)
  Sender: FDA-Public Use
  Company Number: None

PATIENT
  Age: 73 Year
  Sex: Male
  Weight: 58.0604 kg

DRUGS (5)
  1. CLONIDINE [Suspect]
     Dosage: 1 PO TID FOR BP
     Route: 048
  2. ASPIRIN [Concomitant]
  3. DOCUSATE NA [Concomitant]
  4. FELODIPINE [Concomitant]
  5. ISOSORBIDE DINETRATE [Concomitant]

REACTIONS (5)
  - ABDOMINAL PAIN UPPER [None]
  - ATRIOVENTRICULAR BLOCK COMPLETE [None]
  - BRADYCARDIA [None]
  - DIZZINESS [None]
  - DYSPNOEA [None]
